FAERS Safety Report 9495626 (Version 2)
Quarter: 2014Q1

REPORT INFORMATION
  Report Type: Report from Study
  Country: US (occurrence: US)
  Receive Date: 20130903
  Receipt Date: 20140204
  Transmission Date: 20141002
  Serious: Yes (Hospitalization, Other)
  Sender: FDA-Public Use
  Company Number: US-BAXTER-2013BAX034271

PATIENT
  Sex: Female
  Weight: 39.04 kg

DRUGS (14)
  1. ARALAST NP [Suspect]
     Indication: PRODUCT USED FOR UNKNOWN INDICATION
     Route: 042
     Dates: start: 2013
  2. NORVASC [Concomitant]
     Indication: HYPERTENSION
  3. METOPROLOL [Concomitant]
     Indication: HYPERTENSION
  4. RANITIDINE [Concomitant]
     Indication: GASTROOESOPHAGEAL REFLUX DISEASE
  5. RANITIDINE [Concomitant]
     Indication: DIVERTICULITIS
  6. NEURONTIN [Concomitant]
     Indication: RESTLESS LEGS SYNDROME
  7. LEXAPRO [Concomitant]
     Indication: DEPRESSION
  8. NITROGLYCERIN [Concomitant]
     Indication: CHEST PAIN
  9. DUONEB [Concomitant]
     Indication: CHRONIC OBSTRUCTIVE PULMONARY DISEASE
  10. DUONEB [Concomitant]
     Indication: EMPHYSEMA
  11. OXYGEN [Concomitant]
     Indication: CHRONIC OBSTRUCTIVE PULMONARY DISEASE
  12. OXYGEN [Concomitant]
     Indication: EMPHYSEMA
  13. DEPO-PROVERA [Concomitant]
     Indication: ENDOMETRIOSIS
     Route: 030
  14. GLASSIA_0.02 G/ML_SOLUTION FOR INFUSION_VIAL, GLASS [Concomitant]
     Indication: PRODUCT USED FOR UNKNOWN INDICATION
     Dates: start: 2013

REACTIONS (10)
  - Apparent death [Unknown]
  - Panic attack [Not Recovered/Not Resolved]
  - Dyspnoea [Unknown]
  - Dyspnoea [Unknown]
  - Anxiety [Not Recovered/Not Resolved]
  - Nasopharyngitis [Unknown]
  - Productive cough [Unknown]
  - Stress [Unknown]
  - Incorrect drug administration rate [Unknown]
  - Headache [Unknown]
